FAERS Safety Report 8361349-3 (Version None)
Quarter: 2012Q2

REPORT INFORMATION
  Report Type: 
  Country: None (occurrence: None)
  Receive Date: 20120515
  Receipt Date: 20120511
  Transmission Date: 20120825
  Serious: Yes (Other)
  Sender: FDA-Public Use
  Company Number: US-BAYER-2012-047060

PATIENT
  Sex: Male

DRUGS (2)
  1. NEXAVAR [Suspect]
     Dosage: 400 MG, BID
  2. NEXAVAR [Suspect]
     Dosage: 200 MG, BID
     Dates: start: 20120101

REACTIONS (1)
  - PANCREATITIS ACUTE [None]
